FAERS Safety Report 11245803 (Version 2)
Quarter: 2015Q3

REPORT INFORMATION
  Report Type: Spontaneous
  Country: JP (occurrence: JP)
  Receive Date: 20150707
  Receipt Date: 20150806
  Transmission Date: 20151125
  Serious: Yes (Hospitalization, Other)
  Sender: FDA-Public Use
  Company Number: JP-009507513-1507JPN002425

PATIENT
  Age: 70 Year
  Sex: Male
  Weight: 75 kg

DRUGS (3)
  1. FERON [Suspect]
     Active Substance: INTERFERON BETA
     Dosage: 6 X 10^6 IU (ALSO REPORTED AS 6 THOUSAND MILLON IU, 3 TIMES A WEEK)
     Route: 042
     Dates: start: 20141013, end: 20141229
  2. REBETOL [Suspect]
     Active Substance: RIBAVIRIN
     Indication: HEPATIC CIRRHOSIS
     Dosage: 800 MG, QD
     Route: 048
     Dates: start: 20140929, end: 20141228
  3. FERON [Suspect]
     Active Substance: INTERFERON BETA
     Indication: HEPATIC CIRRHOSIS
     Dosage: 6 X 10^6 IU (ALSO REPORTED AS 6 MILLION IU, SIX TIMES A WEEK)
     Route: 042
     Dates: start: 20140929, end: 20141010

REACTIONS (1)
  - Hepatocellular carcinoma [Recovered/Resolved]

NARRATIVE: CASE EVENT DATE: 20150120
